FAERS Safety Report 11346535 (Version 1)
Quarter: 2015Q3

REPORT INFORMATION
  Report Type: Spontaneous
  Country: US (occurrence: US)
  Receive Date: 20150803
  Receipt Date: 20150803
  Transmission Date: 20151125
  Serious: No
  Sender: FDA-Public Use
  Company Number: US-ELI_LILLY_AND_COMPANY-US201011001544

PATIENT
  Sex: Female

DRUGS (5)
  1. ZYPREXA [Suspect]
     Active Substance: OLANZAPINE
     Indication: PSYCHOTIC DISORDER
     Dosage: 15 MG, DAILY (1/D)
     Dates: start: 20100908
  2. FLUPHENAZINE [Concomitant]
     Active Substance: FLUPHENAZINE
  3. WELLBUTRIN [Concomitant]
     Active Substance: BUPROPION HYDROCHLORIDE
     Indication: DEPRESSION
  4. ZYPREXA [Suspect]
     Active Substance: OLANZAPINE
     Indication: PSYCHOTIC DISORDER
     Dosage: 10 MG, DAILY (1/D)
  5. HYDROXYZINE [Concomitant]
     Active Substance: HYDROXYZINE\HYDROXYZINE HYDROCHLORIDE

REACTIONS (14)
  - Somnolence [Unknown]
  - Vision blurred [Unknown]
  - Memory impairment [Unknown]
  - Mania [Unknown]
  - Agitation [Unknown]
  - Drug ineffective [Unknown]
  - Mental disorder [Unknown]
  - Irritability [Unknown]
  - Fatigue [Unknown]
  - Psychiatric symptom [Unknown]
  - Fear [Unknown]
  - Hypersomnia [Unknown]
  - Frustration [Unknown]
  - Feeling abnormal [Unknown]
